FAERS Safety Report 14771931 (Version 1)
Quarter: 2018Q2

REPORT INFORMATION
  Report Type: Not Available
  Country: US (occurrence: US)
  Receive Date: 20180417
  Receipt Date: 20180417
  Transmission Date: 20180711
  Serious: No
  Sender: FDA-Public Use
  Company Number: US-NEUROCRINE BIOSCIENCES INC.-2018NBI00340

PATIENT
  Age: 36 Year
  Sex: Male

DRUGS (3)
  1. INGREZZA [Suspect]
     Active Substance: VALBENAZINE
     Indication: TARDIVE DYSKINESIA
     Route: 048
     Dates: start: 20180123, end: 20180130
  2. VALPROIC ACID. [Concomitant]
     Active Substance: VALPROIC ACID
  3. SAPHRIS [Concomitant]
     Active Substance: ASENAPINE MALEATE

REACTIONS (4)
  - Blepharospasm [Unknown]
  - Eye movement disorder [Unknown]
  - Somnolence [Unknown]
  - Dizziness [Unknown]

NARRATIVE: CASE EVENT DATE: 201801
